FAERS Safety Report 14536323 (Version 1)
Quarter: 2018Q1

REPORT INFORMATION
  Report Type: Spontaneous
  Country: RU (occurrence: RU)
  Receive Date: 20180215
  Receipt Date: 20180215
  Transmission Date: 20180509
  Serious: Yes (Other)
  Sender: FDA-Public Use
  Company Number: RU-ASTRAZENECA-2018SE17066

PATIENT
  Age: 65 Year
  Sex: Female
  Weight: 100 kg

DRUGS (4)
  1. BRILINTA [Suspect]
     Active Substance: TICAGRELOR
     Indication: MYOCARDIAL INFARCTION
     Route: 048
     Dates: start: 20170601, end: 20180131
  2. BRILINTA [Suspect]
     Active Substance: TICAGRELOR
     Indication: CORONARY ARTERIAL STENT INSERTION
     Route: 048
     Dates: start: 20170601, end: 20180131
  3. THROMBO ASS [Concomitant]
     Active Substance: ASPIRIN
  4. CAPTOPRIL. [Concomitant]
     Active Substance: CAPTOPRIL

REACTIONS (1)
  - Vascular stent stenosis [Not Recovered/Not Resolved]
